FAERS Safety Report 22212557 (Version 1)
Quarter: 2023Q2

REPORT INFORMATION
  Report Type: Spontaneous
  Country: US (occurrence: None)
  Receive Date: 20230414
  Receipt Date: 20230414
  Transmission Date: 20230721
  Serious: No
  Sender: FDA-Public Use
  Company Number: None

PATIENT
  Age: 76 Year
  Sex: Male
  Weight: 99 kg

DRUGS (1)
  1. ELIGARD [Suspect]
     Active Substance: LEUPROLIDE ACETATE
     Indication: Blood testosterone abnormal
     Dosage: OTHER QUANTITY : 1 INJECTION(S);?
     Route: 008

REACTIONS (4)
  - Loss of consciousness [None]
  - Fall [None]
  - Injury [None]
  - Weight decreased [None]

NARRATIVE: CASE EVENT DATE: 20230105
